FAERS Safety Report 5756246-3 (Version None)
Quarter: 2008Q2

REPORT INFORMATION
  Report Type: 
  Country: None (occurrence: None)
  Receive Date: 20080602
  Receipt Date: 20080521
  Transmission Date: 20081010
  Serious: Yes (Hospitalization)
  Sender: FDA-Public Use
  Company Number: FR-PFIZER INC-2008043964

PATIENT
  Sex: Male

DRUGS (4)
  1. SOLU-MEDROL [Suspect]
     Dosage: DAILY DOSE:120MG
     Route: 042
     Dates: start: 20080320, end: 20080320
  2. FLUOROURACIL [Suspect]
     Route: 042
     Dates: start: 20080320, end: 20080320
  3. ELOXATIN [Suspect]
     Dosage: DAILY DOSE:160MG
     Route: 042
     Dates: start: 20080320, end: 20080320
  4. ZOPHREN [Suspect]
     Dosage: DAILY DOSE:8MG
     Route: 042
     Dates: start: 20080320, end: 20080320

REACTIONS (1)
  - CHEST PAIN [None]
